FAERS Safety Report 16201335 (Version 3)
Quarter: 2019Q2

REPORT INFORMATION
  Report Type: Report from Study
  Country: BE (occurrence: BE)
  Receive Date: 20190416
  Receipt Date: 20190510
  Transmission Date: 20190711
  Serious: Yes (Hospitalization)
  Sender: FDA-Public Use
  Company Number: BE-REGENERON PHARMACEUTICALS, INC.-2019-27294

PATIENT

DRUGS (20)
  1. LITICAN                            /00690802/ [Concomitant]
     Indication: NAUSEA
     Dosage: 50 MG, PRN
     Route: 048
     Dates: start: 20190318
  2. CEMIPLIMAB [Suspect]
     Active Substance: CEMIPLIMAB
     Indication: SQUAMOUS CELL CARCINOMA OF SKIN
     Dosage: 242.1 MG, QOW (2 WEEKS)
     Route: 042
     Dates: start: 20190318, end: 20190401
  3. METFORMAX [Concomitant]
     Active Substance: METFORMIN HYDROCHLORIDE
     Indication: TYPE 2 DIABETES MELLITUS
     Dosage: 850 MG, BID
     Route: 048
     Dates: end: 20190401
  4. OMEPRAZOL MYLAN                    /00661201/ [Concomitant]
     Active Substance: OMEPRAZOLE
     Indication: DYSPEPSIA
     Dosage: 20 MG, QD
     Route: 048
  5. TRAMADOL HYDROCHLORIDE. [Concomitant]
     Active Substance: TRAMADOL HYDROCHLORIDE
     Indication: EAR PAIN
     Dosage: 100 MG, BID
     Route: 048
  6. PARACETAMOL [Concomitant]
     Active Substance: ACETAMINOPHEN
     Indication: EAR PAIN
     Dosage: 1000 MG, PRN
     Route: 048
  7. PANTOPRAZOLE [Concomitant]
     Active Substance: PANTOPRAZOLE
     Indication: DYSPEPSIA
     Dosage: UNK
     Route: 065
  8. ALIZAPRIDE [Concomitant]
     Active Substance: ALIZAPRIDE
     Indication: NAUSEA
     Dosage: 50 MG, PRN
     Route: 048
     Dates: start: 20190318
  9. PARACETAMOL [Concomitant]
     Active Substance: ACETAMINOPHEN
     Indication: NEOPLASM PROGRESSION
     Dosage: UNK
  10. PANTOPRAZOLE [Concomitant]
     Active Substance: PANTOPRAZOLE
     Indication: DYSPEPSIA
     Dosage: UNK UNK, UNK
     Route: 065
  11. CEMIPLIMAB [Suspect]
     Active Substance: CEMIPLIMAB
     Dosage: 242.1 MG, QOW (2 WEEKS)
     Route: 042
     Dates: start: 20190424
  12. MOVICOL [Concomitant]
     Active Substance: POLYETHYLENE GLYCOL 3350\POTASSIUM CHLORIDE\SODIUM BICARBONATE\SODIUM CHLORIDE
     Indication: CONSTIPATION
     Dosage: 850 MG, BID
     Route: 048
  13. TRADONAL [Concomitant]
     Active Substance: TRAMADOL HYDROCHLORIDE
     Indication: EAR PAIN
     Dosage: 50 MG, PRN
     Route: 048
  14. TRADONAL [Concomitant]
     Active Substance: TRAMADOL HYDROCHLORIDE
     Indication: NEOPLASM
     Dosage: 100 MG, BID
     Route: 048
  15. DUTASTERIDE. [Concomitant]
     Active Substance: DUTASTERIDE
     Indication: BENIGN PROSTATIC HYPERPLASIA
     Dosage: 0.5 MG, QD
     Route: 048
  16. CYNARA CARDUNCULUS [Concomitant]
     Active Substance: HERBALS
     Indication: HYPERTENSION
     Dosage: 1, UNK, QD
     Route: 048
     Dates: end: 20190401
  17. TILDIEM [Concomitant]
     Active Substance: DILTIAZEM HYDROCHLORIDE
     Indication: HYPERTENSION
     Dosage: 200 MG, QD
     Route: 048
  18. PROSTATEX                          /01589801/ [Concomitant]
     Indication: BENIGN PROSTATIC HYPERPLASIA
     Dosage: 0.5 MG, QD
     Route: 048
  19. INDAPAMIDE. [Concomitant]
     Active Substance: INDAPAMIDE
     Indication: HYPERTENSION
     Dosage: UNK UNK, UNK
     Route: 048
     Dates: end: 20190401
  20. TRAMADOL HYDROCHLORIDE. [Concomitant]
     Active Substance: TRAMADOL HYDROCHLORIDE
     Indication: NEOPLASM
     Dosage: UNK

REACTIONS (3)
  - Gastroenteritis [Recovered/Resolved]
  - Acute kidney injury [Recovered/Resolved]
  - Dehydration [Recovered/Resolved]

NARRATIVE: CASE EVENT DATE: 20190401
